FAERS Safety Report 8491620-6 (Version None)
Quarter: 2012Q3

REPORT INFORMATION
  Report Type: 
  Country: None (occurrence: None)
  Receive Date: 20120706
  Receipt Date: 20120522
  Transmission Date: 20120928
  Serious: No
  Sender: FDA-Public Use
  Company Number: US-BAYER-2012-052778

PATIENT
  Age: 80 Year
  Sex: Male

DRUGS (2)
  1. ALEVE (CAPLET) [Suspect]
     Indication: PAIN
     Dosage: 1 DF, QD
     Route: 048
     Dates: start: 20110101
  2. ALEVE (CAPLET) [Suspect]
     Dosage: 1 DF, QD
     Route: 048
     Dates: start: 20120101

REACTIONS (1)
  - HYPERTENSION [None]
